FAERS Safety Report 9455350 (Version 2)
Quarter: 2013Q3

REPORT INFORMATION
  Report Type: Spontaneous
  Country: GB (occurrence: GB)
  Receive Date: 20130813
  Receipt Date: 20130819
  Transmission Date: 20140515
  Serious: Yes (Hospitalization)
  Sender: FDA-Public Use
  Company Number: PHFR2013GB004511

PATIENT
  Age: 70 Year
  Sex: Male

DRUGS (3)
  1. CLOZARIL [Suspect]
     Indication: SCHIZOPHRENIA
     Dosage: UNK
     Route: 048
     Dates: start: 20060623
  2. MADOPAR [Concomitant]
     Indication: PARKINSON^S DISEASE
     Dosage: UNK
     Route: 048
  3. ROTIGOTINE [Concomitant]
     Indication: PARKINSON^S DISEASE
     Dosage: UNK
     Route: 058

REACTIONS (2)
  - Femur fracture [Recovered/Resolved]
  - Fall [Recovered/Resolved]
